FAERS Safety Report 23704444 (Version 1)
Quarter: 2024Q2

REPORT INFORMATION
  Report Type: Spontaneous
  Country: US (occurrence: US)
  Receive Date: 20240404
  Receipt Date: 20240404
  Transmission Date: 20240716
  Serious: No
  Sender: FDA-Public Use
  Company Number: US-SA-SAC20240328000573

PATIENT
  Age: 6 Year
  Sex: Male
  Weight: 17.1 kg

DRUGS (5)
  1. DUPIXENT [Suspect]
     Active Substance: DUPILUMAB
     Indication: Dermatitis atopic
     Dosage: 600 MG, 1X
     Route: 058
     Dates: start: 20240208, end: 20240208
  2. DUPIXENT [Suspect]
     Active Substance: DUPILUMAB
     Indication: Epidermolysis bullosa
  3. VYJUVEK [Concomitant]
     Active Substance: BEREMAGENE GEPERPAVEC-SVDT
     Dosage: VYJUVEK 5X10E9/2.5 GEL (ML)
  4. GENTAMICIN SULFATE [Concomitant]
     Active Substance: GENTAMICIN SULFATE
     Dosage: UNK
  5. MUPIROCIN [Concomitant]
     Active Substance: MUPIROCIN
     Dosage: UNK

REACTIONS (2)
  - Eczema [Not Recovered/Not Resolved]
  - Product use in unapproved indication [Unknown]

NARRATIVE: CASE EVENT DATE: 20240208
